FAERS Safety Report 13727333 (Version 1)
Quarter: 2017Q3

REPORT INFORMATION
  Report Type: Spontaneous
  Country: GB (occurrence: GB)
  Receive Date: 20170706
  Receipt Date: 20170706
  Transmission Date: 20171127
  Serious: Yes (Other)
  Sender: FDA-Public Use
  Company Number: GB-TEVA-781885ACC

PATIENT
  Age: 50 Year
  Sex: Male
  Weight: 75 kg

DRUGS (7)
  1. LERCANIDIPINE [Concomitant]
     Active Substance: LERCANIDIPINE
  2. DULOXETINE. [Concomitant]
     Active Substance: DULOXETINE
  3. RAMIPRIL. [Concomitant]
     Active Substance: RAMIPRIL
  4. PROPRANOLOL [Concomitant]
     Active Substance: PROPRANOLOL HYDROCHLORIDE
  5. LITHIUM. [Concomitant]
     Active Substance: LITHIUM
  6. ATORVASTATIN [Suspect]
     Active Substance: ATORVASTATIN
     Indication: TYPE 2 DIABETES MELLITUS
     Dosage: QUARTER 3 STARTED TAKING
     Dates: start: 2016, end: 20170423
  7. LANSOPRAZOLE. [Concomitant]
     Active Substance: LANSOPRAZOLE

REACTIONS (4)
  - Fatigue [Recovered/Resolved]
  - Haematospermia [Recovered/Resolved]
  - Myalgia [Recovered/Resolved]
  - Withdrawal syndrome [Unknown]

NARRATIVE: CASE EVENT DATE: 2017
